FAERS Safety Report 4687770-2 (Version None)
Quarter: 2005Q2

REPORT INFORMATION
  Report Type: 
  Country: None (occurrence: None)
  Receive Date: 20050609
  Receipt Date: 20050609
  Transmission Date: 20051028
  Serious: Yes (Hospitalization)
  Sender: FDA-Public Use
  Company Number: None

PATIENT
  Age: 35 Year
  Sex: Male
  Weight: 108.8633 kg

DRUGS (4)
  1. GAMUNEX [Suspect]
     Indication: AUTOIMMUNE DISORDER
     Dosage: 140 GM INTRAVENOU
     Route: 042
     Dates: start: 20050601, end: 20050601
  2. TYLENOL [Concomitant]
  3. BENADRYL [Concomitant]
  4. DEXAMETHASONE [Concomitant]

REACTIONS (1)
  - HAEMOLYSIS [None]
